FAERS Safety Report 9372073 (Version 1)
Quarter: 2013Q2

REPORT INFORMATION
  Report Type: Report from Study
  Country: US (occurrence: US)
  Receive Date: 20130627
  Receipt Date: 20130627
  Transmission Date: 20140414
  Serious: Yes (Life-Threatening)
  Sender: FDA-Public Use
  Company Number: US-MYLANLABS-2012S1014175

PATIENT
  Age: 49 Year
  Sex: Female
  Weight: 83.92 kg

DRUGS (2)
  1. CLOZAPINE TABLETS [Suspect]
     Route: 048
     Dates: start: 201007, end: 20120710
  2. CHEMOTHERAPEUTICS [Suspect]
     Indication: HODGKIN^S DISEASE

REACTIONS (2)
  - Agranulocytosis [Recovered/Resolved]
  - Leukopenia [Recovered/Resolved]
